FAERS Safety Report 8595743-2 (Version None)
Quarter: 2012Q3

REPORT INFORMATION
  Report Type: 
  Country: None (occurrence: None)
  Receive Date: 20120815
  Receipt Date: 20110212
  Transmission Date: 20120928
  Serious: Yes (Other)
  Sender: FDA-Public Use
  Company Number: PT-ROCHE-1093714

PATIENT
  Age: 19 Year
  Sex: Female

DRUGS (2)
  1. COPEGUS [Suspect]
     Indication: HEPATITIS C
     Route: 065
  2. PEGYLATED INTERFERON NOS [Suspect]
     Indication: HEPATITIS C
     Route: 065

REACTIONS (2)
  - RASH [None]
  - MENOMETRORRHAGIA [None]
